FAERS Safety Report 11777761 (Version 3)
Quarter: 2016Q2

REPORT INFORMATION
  Report Type: Spontaneous
  Country: CA (occurrence: CA)
  Receive Date: 20151125
  Receipt Date: 20160427
  Transmission Date: 20160815
  Serious: Yes (Other)
  Sender: FDA-Public Use
  Company Number: CA-SYMPLMED PHARMACEUTICALS-2015SYMPLMED000086

PATIENT

DRUGS (1)
  1. COVERSYL [Suspect]
     Active Substance: PERINDOPRIL
     Indication: HYPERTENSION
     Dosage: 2 MG, UNK
     Route: 048

REACTIONS (4)
  - Proteinuria [Unknown]
  - Renal failure [Unknown]
  - Nephrotic syndrome [Unknown]
  - Oedema [Unknown]

NARRATIVE: CASE EVENT DATE: 2015
